FAERS Safety Report 23493112 (Version 1)
Quarter: 2024Q1

REPORT INFORMATION
  Report Type: Report from Study
  Country: TR (occurrence: TR)
  Receive Date: 20240207
  Receipt Date: 20240207
  Transmission Date: 20240410
  Serious: Yes (Death, Hospitalization)
  Sender: FDA-Public Use
  Company Number: TR-ABBVIE-5625906

PATIENT
  Age: 72 Year
  Sex: Female
  Weight: 85 kg

DRUGS (5)
  1. CARBIDOPA\LEVODOPA [Suspect]
     Active Substance: CARBIDOPA\LEVODOPA
     Indication: Parkinson^s disease
     Dosage: MORNING DOSE (ML): 10.00 CONTINIOUS DOSE (ML): 4.40 EXTRA DOSE (ML): 2.00
     Route: 050
     Dates: start: 20230310
  2. CARBIDOPA\LEVODOPA [Suspect]
     Active Substance: CARBIDOPA\LEVODOPA
  3. DOPADEX SR [Concomitant]
     Indication: Parkinson^s disease
     Dosage: 50  MG/ 200 MG,?CARBIDOPA+LEVODOPA (DOPADEX SR)
     Dates: start: 2020
  4. ASPIRIN [Concomitant]
     Active Substance: ASPIRIN
     Indication: Coronary artery disease
     Dosage: 100 MILLIGRAM,?ACETYLSALICYLIC ACID(CORASPIN)
     Dates: start: 2008
  5. Desal [Concomitant]
     Indication: Coronary artery disease
     Dosage: 40 MILLIGRAM?FUROSEMIDE(DESAL)
     Dates: start: 2008

REACTIONS (3)
  - Cardiac arrest [Fatal]
  - Cholecystitis [Recovered/Resolved]
  - Vomiting [Recovered/Resolved]

NARRATIVE: CASE EVENT DATE: 20240101
